FAERS Safety Report 17865083 (Version 1)
Quarter: 2020Q2

REPORT INFORMATION
  Report Type: Spontaneous
  Country: FR (occurrence: FR)
  Receive Date: 20200605
  Receipt Date: 20200605
  Transmission Date: 20200714
  Serious: Yes (Other)
  Sender: FDA-Public Use
  Company Number: FR-ACCORD-184456

PATIENT
  Age: 58 Year
  Sex: Female
  Weight: 84 kg

DRUGS (9)
  1. LYSANXIA [Concomitant]
     Active Substance: PRAZEPAM
  2. EFFEXOR [Concomitant]
     Active Substance: VENLAFAXINE HYDROCHLORIDE
  3. NOCTAMIDE [Concomitant]
     Active Substance: LORMETAZEPAM
  4. CARBOPLATINE ACCORD [Suspect]
     Active Substance: CARBOPLATIN
     Indication: CERVIX CARCINOMA
     Route: 042
     Dates: start: 20191030, end: 20200303
  5. THERALENE [Concomitant]
     Active Substance: TRIMEPRAZINE
  6. MOVICOL [Concomitant]
     Active Substance: POLYETHYLENE GLYCOL 3350\POTASSIUM CHLORIDE\SODIUM BICARBONATE\SODIUM CHLORIDE
  7. AVASTIN [Suspect]
     Active Substance: BEVACIZUMAB
     Indication: CERVIX CARCINOMA
     Route: 042
     Dates: start: 20191126
  8. PACLITAXEL HOSPIRA [Suspect]
     Active Substance: PACLITAXEL
     Indication: CERVIX CARCINOMA
     Route: 042
     Dates: start: 20191030, end: 20200303
  9. NORSET [Concomitant]
     Active Substance: MIRTAZAPINE

REACTIONS (2)
  - Neuropathy peripheral [Not Recovered/Not Resolved]
  - Myalgia [Not Recovered/Not Resolved]

NARRATIVE: CASE EVENT DATE: 20200121
